FAERS Safety Report 7832943-0 (Version None)
Quarter: 2011Q4

REPORT INFORMATION
  Report Type: 
  Country: None (occurrence: None)
  Receive Date: 20111019
  Receipt Date: 20111012
  Transmission Date: 20120403
  Serious: Yes (Hospitalization, Other)
  Sender: FDA-Public Use
  Company Number: AUR-APU-2011-05452

PATIENT
  Age: 48 Year
  Sex: Female

DRUGS (9)
  1. COREG [Concomitant]
  2. CELEXA [Concomitant]
  3. COLACE (DOCUSATE SODIUM) [Concomitant]
  4. LAMOTRIGINE [Suspect]
     Indication: DEPRESSED MOOD
     Dosage: (1 DOSAGE FORMS, 1 D), ORAL
     Route: 048
     Dates: start: 20110826, end: 20110830
  5. SYNTHROID [Concomitant]
  6. SENNA PLUS (SENNA ALEXANDRINA) [Concomitant]
  7. LAMOTRIGINE [Suspect]
     Indication: DEPRESSED MOOD
     Dosage: (50 MG), (100 MG, 1 D)
     Dates: start: 20110823, end: 20110825
  8. RAMIPRIL [Concomitant]
  9. COUMADIN [Concomitant]

REACTIONS (4)
  - DRUG PRESCRIBING ERROR [None]
  - NERVE INJURY [None]
  - DRUG RASH WITH EOSINOPHILIA AND SYSTEMIC SYMPTOMS [None]
  - STEVENS-JOHNSON SYNDROME [None]
